FAERS Safety Report 5794230-4 (Version None)
Quarter: 2008Q2

REPORT INFORMATION
  Report Type: 
  Country: None (occurrence: None)
  Receive Date: 20080627
  Receipt Date: 20080619
  Transmission Date: 20081010
  Serious: Yes (Hospitalization, Other)
  Sender: FDA-Public Use
  Company Number: US-PFIZER INC-2008051564

PATIENT
  Age: 73 Year
  Sex: Male

DRUGS (4)
  1. GEODON [Suspect]
     Indication: DEPRESSION
     Route: 048
     Dates: start: 20080613, end: 20080617
  2. VALSARTAN [Concomitant]
  3. ATENOLOL [Concomitant]
  4. SERTRALINE [Concomitant]

REACTIONS (3)
  - ABDOMINAL PAIN [None]
  - BLOOD AMYLASE INCREASED [None]
  - LIPASE INCREASED [None]
